FAERS Safety Report 18370885 (Version 1)
Quarter: 2020Q4

REPORT INFORMATION
  Report Type: Spontaneous
  Country: PA (occurrence: PA)
  Receive Date: 20201012
  Receipt Date: 20201012
  Transmission Date: 20210114
  Serious: Yes (Other)
  Sender: FDA-Public Use
  Company Number: PA-EMD SERONO-9190800

PATIENT
  Age: 62 Year
  Sex: Female
  Weight: 54 kg

DRUGS (9)
  1. RIBOCICLIB. [Suspect]
     Active Substance: RIBOCICLIB
     Indication: BREAST CANCER
     Dates: start: 201910
  2. RIBOCICLIB. [Suspect]
     Active Substance: RIBOCICLIB
     Dates: start: 202003
  3. METFORMIN [Suspect]
     Active Substance: METFORMIN HYDROCHLORIDE
     Dosage: 50/1000 MG
  4. AMLODIPINE W/LISINOPRIL [Concomitant]
     Active Substance: AMLODIPINE BESYLATE\LISINOPRIL
     Indication: PRODUCT USED FOR UNKNOWN INDICATION
     Dates: start: 201910
  5. JANUMET [Concomitant]
     Active Substance: METFORMIN HYDROCHLORIDE\SITAGLIPTIN PHOSPHATE
     Indication: PRODUCT USED FOR UNKNOWN INDICATION
     Dosage: 50/1000 MG
     Dates: start: 201912
  6. RIBOCICLIB. [Suspect]
     Active Substance: RIBOCICLIB
     Dates: start: 202003
  7. TRAMAL [Concomitant]
     Active Substance: TRAMADOL
     Indication: PRODUCT USED FOR UNKNOWN INDICATION
     Dates: start: 201910
  8. RIBOCICLIB. [Suspect]
     Active Substance: RIBOCICLIB
     Indication: METASTASIS
     Route: 048
     Dates: start: 201911
  9. METFORMIN [Suspect]
     Active Substance: METFORMIN HYDROCHLORIDE
     Indication: PRODUCT USED FOR UNKNOWN INDICATION
     Dosage: 50/1000 MG
     Dates: start: 201901, end: 201911

REACTIONS (8)
  - Nausea [Unknown]
  - Metastases to spine [Unknown]
  - Pain [Unknown]
  - Weight decreased [Recovering/Resolving]
  - Haemoglobin decreased [Unknown]
  - Vomiting [Recovered/Resolved]
  - Arthralgia [Unknown]
  - Malaise [Recovering/Resolving]

NARRATIVE: CASE EVENT DATE: 201910
